FAERS Safety Report 5495316-4 (Version None)
Quarter: 2007Q4

REPORT INFORMATION
  Report Type: 
  Country: None (occurrence: None)
  Receive Date: 20071024
  Receipt Date: 20071019
  Transmission Date: 20080405
  Serious: Yes (Life-Threatening, Hospitalization)
  Sender: FDA-Public Use
  Company Number: NO-MERCK-0710NOR00020

PATIENT
  Age: 56 Year
  Sex: Female

DRUGS (12)
  1. ANTIPYRINE AND CAFFEINE [Concomitant]
     Indication: ARTHRALGIA
     Route: 048
  2. DICLOFENAC SODIUM [Suspect]
     Indication: ARTHRALGIA
     Route: 048
     Dates: start: 20070801
  3. IBUPROFEN [Suspect]
     Indication: ARTHRALGIA
     Route: 048
     Dates: start: 20070801
  4. NAPROXEN [Suspect]
     Indication: ARTHRALGIA
     Route: 048
  5. ACETAMINOPHEN AND CODEINE PHOSPHATE [Concomitant]
     Route: 048
  6. ACETAMINOPHEN [Concomitant]
     Route: 048
  7. PIROXICAM BETADEX [Suspect]
     Indication: ARTHRALGIA
     Route: 048
  8. NONI [Concomitant]
     Indication: PHYTOTHERAPY
     Route: 048
  9. FUROSEMIDE [Suspect]
     Indication: OEDEMA
     Route: 048
     Dates: start: 20070828
  10. DIAZEPAM [Concomitant]
     Indication: ANXIETY
     Route: 048
  11. DOXYCYCLINE HYCLATE [Interacting]
     Indication: PNEUMONIA
     Route: 065
     Dates: start: 20070828
  12. HYZAAR [Suspect]
     Indication: HYPERTENSION
     Route: 048

REACTIONS (2)
  - DRUG INTERACTION [None]
  - HYPONATRAEMIA [None]
